FAERS Safety Report 6453156-3 (Version None)
Quarter: 2009Q4

REPORT INFORMATION
  Report Type: 
  Country: None (occurrence: None)
  Receive Date: 20091124
  Receipt Date: 20091117
  Transmission Date: 20100525
  Serious: Yes (Other)
  Sender: FDA-Public Use
  Company Number: JP-PFIZER INC-2009289912

PATIENT
  Age: 86 Year
  Sex: Female

DRUGS (5)
  1. XALATAN [Suspect]
     Indication: INTRAOCULAR PRESSURE INCREASED
     Dosage: BOTH EYES ONCE DAILY
     Route: 047
     Dates: start: 20070201
  2. HYALEIN [Concomitant]
     Indication: CORNEAL DISORDER
     Dosage: UNK
     Route: 047
     Dates: start: 20071001
  3. DETANTOL [Concomitant]
     Indication: INTRAOCULAR PRESSURE INCREASED
     Dosage: UNK
     Route: 047
     Dates: start: 20070101
  4. TIMOPTIC [Concomitant]
     Indication: INTRAOCULAR PRESSURE INCREASED
     Dosage: UNK
     Route: 047
     Dates: start: 20080101
  5. TRUSOPT [Concomitant]
     Indication: INTRAOCULAR PRESSURE INCREASED
     Dosage: UNK
     Route: 047
     Dates: start: 20080501

REACTIONS (1)
  - COLOUR BLINDNESS [None]
